FAERS Safety Report 18010396 (Version 1)
Quarter: 2020Q3

REPORT INFORMATION
  Report Type: Spontaneous
  Country: NO (occurrence: NO)
  Receive Date: 20200711
  Receipt Date: 20200711
  Transmission Date: 20201103
  Serious: Yes (Hospitalization, Other)
  Sender: FDA-Public Use
  Company Number: NO-TAKEDA-2020TUS030040

PATIENT
  Age: 83 Year
  Sex: Female

DRUGS (14)
  1. PANODIL [Concomitant]
     Active Substance: ACETAMINOPHEN
     Dosage: 1 GRAM
     Route: 048
  2. KALEORID [Concomitant]
     Active Substance: POTASSIUM CHLORIDE
     Dosage: 750 MILLIGRAM, QD
     Route: 048
  3. NYCOPLUS MAGNESIUM [Concomitant]
     Dosage: 120 MILLIGRAM, QD
     Route: 048
  4. VALLERGAN [Concomitant]
     Active Substance: TRIMEPRAZINE
     Dosage: 10 MILLIGRAM, QD
     Route: 048
  5. ADENURIC [Suspect]
     Active Substance: FEBUXOSTAT
     Indication: GOUT
     Dosage: 40 MILLIGRAM, QOD
     Route: 048
     Dates: start: 20200424, end: 20200525
  6. NEXIUM [Concomitant]
     Active Substance: ESOMEPRAZOLE MAGNESIUM
     Indication: HIATUS HERNIA
     Dosage: 40 MILLIGRAM, QD
     Route: 048
  7. BURINEX [Concomitant]
     Active Substance: BUMETANIDE
     Indication: CARDIAC FAILURE
     Dosage: 1 MILLIGRAM, QD
     Route: 048
  8. MAREVAN [Concomitant]
     Active Substance: WARFARIN SODIUM
     Indication: ATRIAL FIBRILLATION
     Dosage: UNK
     Route: 048
  9. IRON [Concomitant]
     Active Substance: IRON
     Indication: IRON DEFICIENCY ANAEMIA
     Dosage: 9 MILLIGRAM, QD
     Route: 048
  10. PREDNISOLON                        /00016201/ [Concomitant]
     Active Substance: PREDNISOLONE
     Indication: GOUT
     Dosage: 5 MILLIGRAM
     Route: 048
  11. ADENURIC [Suspect]
     Active Substance: FEBUXOSTAT
     Dosage: 80 MILLIGRAM, QOD
     Route: 048
     Dates: start: 20200424, end: 20200525
  12. COLCHICINE. [Concomitant]
     Active Substance: COLCHICINE
     Dosage: 500 MICROGRAM
     Route: 048
     Dates: end: 202005
  13. DIOVAN COMP [Concomitant]
     Active Substance: HYDROCHLOROTHIAZIDE\VALSARTAN
     Indication: HYPERTENSION
     Dosage: 160/12.5 MILLIGRAM
     Route: 048
  14. IMOVANE [Concomitant]
     Active Substance: ZOPICLONE
     Dosage: 5 MILLIGRAM
     Route: 048

REACTIONS (4)
  - Haematuria [Recovered/Resolved]
  - Renal failure [Recovered/Resolved]
  - Product use issue [Recovered/Resolved]
  - Urinary retention [Recovered/Resolved]

NARRATIVE: CASE EVENT DATE: 20200424
